FAERS Safety Report 9549709 (Version 2)
Quarter: 2014Q2

REPORT INFORMATION
  Report Type: Report from Study
  Country: US (occurrence: US)
  Receive Date: 20130924
  Receipt Date: 20140515
  Transmission Date: 20141212
  Serious: Yes (Hospitalization)
  Sender: FDA-Public Use
  Company Number: US-PURDUE-USA-2013-0106600

PATIENT
  Sex: Female
  Weight: 109.75 kg

DRUGS (1)
  1. OXY CR TAB [Suspect]
     Indication: BACK DISORDER
     Dosage: 80 MG, Q8H
     Route: 048

REACTIONS (1)
  - VIIth nerve paralysis [Recovered/Resolved]
